FAERS Safety Report 7650724-8 (Version None)
Quarter: 2011Q3

REPORT INFORMATION
  Report Type: 
  Country: None (occurrence: None)
  Receive Date: 20110802
  Receipt Date: 20110717
  Transmission Date: 20111222
  Serious: Yes (Hospitalization)
  Sender: FDA-Public Use
  Company Number: IT-AMGEN-ITASP2011036267

PATIENT
  Age: 68 Year
  Sex: Male
  Weight: 85 kg

DRUGS (7)
  1. PANITUMUMAB [Suspect]
     Indication: COLORECTAL CANCER METASTATIC
     Dosage: 522 MG, UNK
     Dates: start: 20110510
  2. LANSOPRAZOLE [Concomitant]
     Dosage: 30 MG, UNK
     Route: 048
     Dates: start: 20110419, end: 20110523
  3. OXALIPLATIN [Concomitant]
     Dosage: 128 MG, UNK
     Dates: start: 20110510
  4. ENALAPRIL MALEATE [Concomitant]
     Indication: HYPERTENSION
     Dosage: 20 MG, UNK
     Route: 048
  5. IRINOTECAN HCL [Concomitant]
     Dosage: 225 UNK, UNK
     Dates: start: 20110510
  6. FLUOROURACIL [Concomitant]
     Dosage: 3600 MG, UNK
     Dates: start: 20110510
  7. LEUCOVORIN CALCIUM [Concomitant]
     Dosage: 400 MG, UNK
     Dates: start: 20110510

REACTIONS (3)
  - DIARRHOEA [None]
  - MUCOSAL INFLAMMATION [None]
  - CHEST PAIN [None]
